FAERS Safety Report 13303622 (Version 11)
Quarter: 2018Q1

REPORT INFORMATION
  Report Type: Spontaneous
  Country: US (occurrence: US)
  Receive Date: 20170307
  Receipt Date: 20180314
  Transmission Date: 20180508
  Serious: Yes (Death, Hospitalization)
  Sender: FDA-Public Use
  Company Number: US-ACTELION-A-NJ2015-120620

PATIENT
  Age: 61 Year
  Sex: Male
  Weight: 80.73 kg

DRUGS (8)
  1. ADCIRCA [Concomitant]
     Active Substance: TADALAFIL
  2. OPSUMIT [Suspect]
     Active Substance: MACITENTAN
     Dosage: 10 MG, QD
     Route: 048
  3. OPSUMIT [Suspect]
     Active Substance: MACITENTAN
     Indication: PULMONARY ARTERIAL HYPERTENSION
     Dosage: 10 MG, QD
     Route: 048
     Dates: start: 20140703
  4. ORENITRAM [Suspect]
     Active Substance: TREPROSTINIL
     Indication: PRODUCT USED FOR UNKNOWN INDICATION
     Route: 065
  5. ADEMPAS [Concomitant]
     Active Substance: RIOCIGUAT
  6. COUMADIN [Concomitant]
     Active Substance: WARFARIN SODIUM
  7. OXYGEN. [Concomitant]
     Active Substance: OXYGEN
     Dosage: CONTINUOUSLY
  8. AMLODIPINE [Concomitant]
     Active Substance: AMLODIPINE BESYLATE

REACTIONS (17)
  - Heart rate increased [Recovering/Resolving]
  - Flushing [Recovering/Resolving]
  - Pulmonary arterial hypertension [Fatal]
  - Cardiac failure [Fatal]
  - Respiration abnormal [Unknown]
  - Cardiac disorder [Unknown]
  - Scleroderma [Fatal]
  - Dyspnoea [Unknown]
  - Multiple organ dysfunction syndrome [Fatal]
  - Peripheral swelling [Unknown]
  - Hypotension [Recovering/Resolving]
  - Hepatic failure [Fatal]
  - Diarrhoea [Recovering/Resolving]
  - Headache [Unknown]
  - Fluid retention [Unknown]
  - Pain in jaw [Recovering/Resolving]
  - Dizziness [Recovering/Resolving]
